FAERS Safety Report 11448565 (Version 1)
Quarter: 2015Q3

REPORT INFORMATION
  Report Type: Spontaneous
  Country: DE (occurrence: DE)
  Receive Date: 20150902
  Receipt Date: 20150902
  Transmission Date: 20151125
  Serious: Yes (Other)
  Sender: FDA-Public Use
  Company Number: PHHY2015DE105214

PATIENT
  Age: 41 Year
  Sex: Female

DRUGS (5)
  1. HALOPERIDOL. [Suspect]
     Active Substance: HALOPERIDOL
     Indication: SCHIZOPHRENIA, PARANOID TYPE
     Dosage: 5 MG, QD
     Route: 065
  2. BIPERIDEN [Concomitant]
     Active Substance: BIPERIDEN
     Indication: SCHIZOPHRENIA, PARANOID TYPE
     Route: 065
  3. AMISULPRIDE [Interacting]
     Active Substance: AMISULPRIDE
     Indication: SCHIZOPHRENIA, PARANOID TYPE
     Dosage: 200 MG, QD
     Route: 065
  4. PHENPROCOUMON [Concomitant]
     Active Substance: PHENPROCOUMON
     Indication: SCHIZOPHRENIA, PARANOID TYPE
     Dosage: 3 MG, QD
     Route: 065
  5. ISOSORBIDE DINITRATE. [Concomitant]
     Active Substance: ISOSORBIDE DINITRATE
     Indication: SCHIZOPHRENIA, PARANOID TYPE
     Dosage: 40 MG, QD
     Route: 065

REACTIONS (2)
  - Myalgia [Recovering/Resolving]
  - Drug interaction [Unknown]
